FAERS Safety Report 18035133 (Version 2)
Quarter: 2020Q3

REPORT INFORMATION
  Report Type: Spontaneous
  Country: BR (occurrence: BR)
  Receive Date: 20200717
  Receipt Date: 20200820
  Transmission Date: 20201103
  Serious: Yes (Other)
  Sender: FDA-Public Use
  Company Number: BR-AMGEN-BRASP2018134298

PATIENT
  Age: 4 Year
  Sex: Female

DRUGS (3)
  1. ENBREL [Suspect]
     Active Substance: ETANERCEPT
     Dosage: 25 MG TWICE A WEEK
     Route: 065
     Dates: end: 201902
  2. ENBREL [Suspect]
     Active Substance: ETANERCEPT
     Dosage: 25 MG, WEEKLY
     Route: 065
     Dates: start: 201809
  3. ENBREL [Suspect]
     Active Substance: ETANERCEPT
     Indication: BLAU SYNDROME
     Dosage: UNK
     Route: 065
     Dates: start: 20180915

REACTIONS (7)
  - Product use in unapproved indication [Unknown]
  - Incorrect product dosage form administered [Unknown]
  - Psoriasis [Unknown]
  - Product use issue [Unknown]
  - Rheumatic fever [Unknown]
  - Product prescribing error [Unknown]
  - Off label use [Unknown]
